FAERS Safety Report 14457101 (Version 1)
Quarter: 2018Q1

REPORT INFORMATION
  Report Type: Spontaneous
  Country: US (occurrence: US)
  Receive Date: 20180130
  Receipt Date: 20180130
  Transmission Date: 20180509
  Serious: Yes (Hospitalization)
  Sender: FDA-Public Use
  Company Number: US-ASTRAZENECA-2018SE10601

PATIENT
  Age: 52 Year
  Sex: Female

DRUGS (1)
  1. QUETIAPINE. [Suspect]
     Active Substance: QUETIAPINE
     Dosage: APPROXIMATELY 1,150 MG
     Route: 048

REACTIONS (2)
  - Eosinophilia [Unknown]
  - Pericarditis [Unknown]
